FAERS Safety Report 8264173 (Version 5)
Quarter: 2012Q4

REPORT INFORMATION
  Report Type: Report from Study
  Country: FR (occurrence: FR)
  Receive Date: 20111128
  Receipt Date: 20121228
  Transmission Date: 20130627
  Serious: Yes (Hospitalization)
  Sender: FDA-Public Use
  Company Number: FR-SANOFI-AVENTIS-2011SA076540

PATIENT
  Age: 56 Year
  Sex: Male
  Weight: 84 kg

DRUGS (5)
  1. LANTUS SOLOSTAR [Suspect]
     Indication: TYPE II DIABETES MELLITUS
     Route: 058
     Dates: start: 20111025
  2. SOLOSTAR [Suspect]
     Indication: DEVICE THERAPY
     Dates: start: 20111025
  3. METFORMIN [Concomitant]
     Indication: DIABETES
     Dates: start: 20090422
  4. AMAREL [Concomitant]
     Indication: DIABETES
     Dates: start: 20090612
  5. ROSUVASTATIN CALCIUM [Concomitant]
     Indication: HYPERCHOLESTEROLEMIA
     Dates: start: 20080310

REACTIONS (3)
  - Craniocerebral injury [Recovered/Resolved]
  - Loss of consciousness [Recovered/Resolved]
  - Fall [Unknown]
